FAERS Safety Report 13059093 (Version 1)
Quarter: 2016Q4

REPORT INFORMATION
  Report Type: Spontaneous
  Country: US (occurrence: US)
  Receive Date: 20161223
  Receipt Date: 20161223
  Transmission Date: 20170207
  Serious: No
  Sender: FDA-Public Use
  Company Number: US-BAUSCH-BL-2016-012433

PATIENT
  Age: 53 Year
  Sex: Female
  Weight: 56.3 kg

DRUGS (1)
  1. XENAZINE [Suspect]
     Active Substance: TETRABENAZINE
     Indication: TARDIVE DYSKINESIA
     Route: 048
     Dates: start: 20160524, end: 20160524

REACTIONS (3)
  - Condition aggravated [Recovered/Resolved]
  - Off label use [Recovered/Resolved]
  - Tardive dyskinesia [Recovered/Resolved]

NARRATIVE: CASE EVENT DATE: 20160524
